FAERS Safety Report 4903150-6 (Version None)
Quarter: 2006Q1

REPORT INFORMATION
  Report Type: 
  Country: None (occurrence: None)
  Receive Date: 20060113
  Receipt Date: 20050214
  Transmission Date: 20060701
  Serious: Yes (Other)
  Sender: FDA-Public Use
  Company Number: HQWYE209717JUL04

PATIENT
  Age: 72 Year
  Sex: Female
  Weight: 77.18 kg

DRUGS (8)
  1. PREMPRO [Suspect]
     Indication: MYOCARDIAL INFARCTION
     Dosage: ORAL
     Route: 048
     Dates: start: 20000301
  2. PREMPRO [Suspect]
     Indication: PROPHYLAXIS
     Dosage: ORAL
     Route: 048
     Dates: start: 20000301
  3. PREMARIN [Suspect]
     Dosage: 0.625 MG, ORAL
     Route: 048
     Dates: start: 19900303
  4. PROVERA [Suspect]
     Dosage: 10 MG, ORAL
     Route: 048
  5. LEVOXYL [Concomitant]
  6. LOTREL [Concomitant]
  7. ATENOLOL [Concomitant]
  8. LASIX [Concomitant]

REACTIONS (1)
  - BREAST CANCER [None]
